FAERS Safety Report 4331218-4 (Version None)
Quarter: 2004Q2

REPORT INFORMATION
  Report Type: 
  Country: None (occurrence: None)
  Receive Date: 20040402
  Receipt Date: 20040402
  Transmission Date: 20050107
  Serious: Yes (Death, Life-Threatening, Hospitalization)
  Sender: FDA-Public Use
  Company Number: None

PATIENT
  Age: 64 Year
  Sex: Female
  Weight: 63.5036 kg

DRUGS (1)
  1. DEXAMETHASONE [Suspect]
     Indication: BRAIN MASS
     Dates: start: 20040112, end: 20040318

REACTIONS (1)
  - GASTRIC PERFORATION [None]
